FAERS Safety Report 9411182 (Version 1)
Quarter: 2013Q3

REPORT INFORMATION
  Report Type: Spontaneous
  Country: US (occurrence: US)
  Receive Date: 20130721
  Receipt Date: 20130721
  Transmission Date: 20140515
  Serious: Yes (Other)
  Sender: FDA-Public Use
  Company Number: US-MYLANLABS-2013S1015287

PATIENT
  Age: 7 Decade
  Sex: Female

DRUGS (1)
  1. LEVETIRACETAM TABLETS [Suspect]
     Indication: CONVULSION
     Dates: start: 201012, end: 201101

REACTIONS (2)
  - Convulsion [Not Recovered/Not Resolved]
  - Feeling abnormal [Not Recovered/Not Resolved]
